FAERS Safety Report 18174385 (Version 4)
Quarter: 2022Q4

REPORT INFORMATION
  Report Type: Spontaneous
  Country: US (occurrence: US)
  Receive Date: 20200820
  Receipt Date: 20221013
  Transmission Date: 20230112
  Serious: Yes (Other)
  Sender: FDA-Public Use
  Company Number: US-ELI_LILLY_AND_COMPANY-US202008006686

PATIENT
  Sex: Female

DRUGS (4)
  1. HUMALOG [Suspect]
     Active Substance: INSULIN LISPRO
     Indication: Type 2 diabetes mellitus
     Dosage: 12-14 U, PRN (BEFORE EACH MEAL, THREE TIMES A DAY)
     Route: 058
  2. HUMALOG KWIKPEN [Suspect]
     Active Substance: INSULIN LISPRO
     Indication: Product used for unknown indication
     Dosage: 12 U, UNKNOWN (UP TO 50 VIA SLIDING SCALE)
     Route: 065
     Dates: start: 20200827
  3. BASAGLAR [Suspect]
     Active Substance: INSULIN GLARGINE
     Indication: Diabetes mellitus
     Dosage: 34 U, DAILY
     Route: 058
     Dates: start: 20200826
  4. LANTUS [Concomitant]
     Active Substance: INSULIN GLARGINE
     Indication: Type 2 diabetes mellitus
     Dosage: 34 U, DAILY (BEDTIME)

REACTIONS (5)
  - Diabetic retinopathy [Recovering/Resolving]
  - Neoplasm malignant [Recovered/Resolved]
  - Retinal tear [Recovering/Resolving]
  - Blood glucose abnormal [Unknown]
  - Product dose omission issue [Unknown]
